FAERS Safety Report 12160798 (Version 1)
Quarter: 2016Q1

REPORT INFORMATION
  Report Type: Spontaneous
  Country: US (occurrence: US)
  Receive Date: 20160308
  Receipt Date: 20160308
  Transmission Date: 20160526
  Serious: Yes (Hospitalization)
  Sender: FDA-Public Use
  Company Number: US-PURDUE-USA-2016-0129387

PATIENT
  Age: 62 Year
  Sex: Female
  Weight: 102.4 kg

DRUGS (6)
  1. FLEXERIL [Concomitant]
     Active Substance: CYCLOBENZAPRINE HYDROCHLORIDE
     Indication: MUSCLE RELAXANT THERAPY
     Dosage: 10 MG, HS
     Route: 048
  2. VALSARTAN AND HYDROCHLOROTHIAZIDE [Concomitant]
     Active Substance: HYDROCHLOROTHIAZIDE\VALSARTAN
     Indication: BLOOD PRESSURE ABNORMAL
     Dosage: 320-25 MG, UNK
     Route: 048
     Dates: start: 20151214, end: 20160114
  3. OMEPRAZOLE. [Concomitant]
     Active Substance: OMEPRAZOLE
     Indication: PRODUCT USED FOR UNKNOWN INDICATION
     Dosage: 40 MG, DAILY
     Route: 048
     Dates: end: 201602
  4. GABAPENTIN. [Concomitant]
     Active Substance: GABAPENTIN
     Indication: NERVE INJURY
     Dosage: 300 MG, TID
     Route: 048
     Dates: start: 20151118, end: 20160104
  5. MS CONTIN [Suspect]
     Active Substance: MORPHINE SULFATE
     Indication: BACK PAIN
     Dosage: 30 MG, BID
     Route: 048
     Dates: start: 2014, end: 201601
  6. LUNESTA [Concomitant]
     Active Substance: ESZOPICLONE
     Indication: INSOMNIA
     Dosage: 3 MG, HS
     Route: 048

REACTIONS (1)
  - Renal disorder [Unknown]

NARRATIVE: CASE EVENT DATE: 20160104
